FAERS Safety Report 4419215-1 (Version None)
Quarter: 2004Q3

REPORT INFORMATION
  Report Type: 
  Country: None (occurrence: None)
  Receive Date: 20040809
  Receipt Date: 20040120
  Transmission Date: 20050211
  Serious: No
  Sender: FDA-Public Use
  Company Number: US-GLAXOSMITHKLINE-A0494278A

PATIENT
  Sex: Female

DRUGS (1)
  1. PAXIL [Suspect]
     Dates: start: 20000101

REACTIONS (2)
  - ADVERSE EVENT [None]
  - WEIGHT INCREASED [None]
